FAERS Safety Report 17215724 (Version 6)
Quarter: 2020Q3

REPORT INFORMATION
  Report Type: Spontaneous
  Country: US (occurrence: US)
  Receive Date: 20191230
  Receipt Date: 20200827
  Transmission Date: 20201102
  Serious: Yes (Other)
  Sender: FDA-Public Use
  Company Number: US-BAYER-2019-235093

PATIENT
  Age: 2 Year
  Sex: Male

DRUGS (6)
  1. KOGENATE FS [Suspect]
     Active Substance: ANTIHEMOPHILIC FACTOR, HUMAN RECOMBINANT
     Dosage: 557 IU, EXTRA DOSE FOR HEAD INJURY
     Route: 042
     Dates: start: 202003, end: 202003
  2. KOGENATE FS [Suspect]
     Active Substance: ANTIHEMOPHILIC FACTOR, HUMAN RECOMBINANT
     Dosage: TAKEN EXTRA DOSE ON 03?AUG?2020 DUE TO FELL OF THE COUCH AND BUMPED HEAD
     Route: 042
  3. KOGENATE FS [Suspect]
     Active Substance: ANTIHEMOPHILIC FACTOR, HUMAN RECOMBINANT
     Dosage: 680 U
     Route: 042
  4. KOGENATE FS [Suspect]
     Active Substance: ANTIHEMOPHILIC FACTOR, HUMAN RECOMBINANT
     Dosage: 545 IU
     Route: 042
  5. KOGENATE FS [Suspect]
     Active Substance: ANTIHEMOPHILIC FACTOR, HUMAN RECOMBINANT
     Dosage: 545 IU, EXTRA DOSE FOR HEAD INJURY
     Route: 042
  6. KOGENATE FS [Suspect]
     Active Substance: ANTIHEMOPHILIC FACTOR, HUMAN RECOMBINANT
     Dosage: 1114 U
     Route: 042
     Dates: end: 202003

REACTIONS (14)
  - Contusion [Recovered/Resolved]
  - Traumatic haemorrhage [Recovered/Resolved]
  - Fall [None]
  - Fall [Recovered/Resolved]
  - Traumatic haemorrhage [Recovered/Resolved]
  - Head injury [None]
  - Head injury [None]
  - Traumatic haemorrhage [Recovered/Resolved]
  - Epistaxis [Recovered/Resolved]
  - Head injury [Recovered/Resolved]
  - Head injury [Recovered/Resolved]
  - Influenza [Recovered/Resolved]
  - Head injury [Recovered/Resolved]
  - Joint swelling [None]

NARRATIVE: CASE EVENT DATE: 20191217
